FAERS Safety Report 6063938-8 (Version None)
Quarter: 2009Q1

REPORT INFORMATION
  Report Type: 
  Country: None (occurrence: None)
  Receive Date: 20090204
  Receipt Date: 20090126
  Transmission Date: 20090719
  Serious: Yes (Hospitalization)
  Sender: FDA-Public Use
  Company Number: PHHY2009FR03025

PATIENT
  Sex: Female

DRUGS (5)
  1. TEGRETOL [Suspect]
     Indication: FACIAL NEURALGIA
     Dosage: 2 DF, QD
     Route: 048
  2. DI-ANTALVIC [Interacting]
     Dosage: UNK
     Route: 048
     Dates: end: 20080227
  3. THEOPHYLLINE [Concomitant]
     Dosage: 300 MG
     Route: 048
  4. LIORESAL [Concomitant]
     Dosage: 10 MG
     Route: 048
  5. TEMESTA [Concomitant]
     Dosage: 1 MG
     Route: 048

REACTIONS (9)
  - ASTHENIA [None]
  - BALANCE DISORDER [None]
  - BRONCHITIS [None]
  - DRUG INTERACTION [None]
  - DRUG LEVEL INCREASED [None]
  - GAMMA-GLUTAMYLTRANSFERASE INCREASED [None]
  - GENERAL PHYSICAL HEALTH DETERIORATION [None]
  - HYPOKALAEMIA [None]
  - OVERDOSE [None]
